FAERS Safety Report 5828644-0 (Version None)
Quarter: 2008Q3

REPORT INFORMATION
  Report Type: 
  Country: None (occurrence: None)
  Receive Date: 20080731
  Receipt Date: 20080722
  Transmission Date: 20090109
  Serious: Yes (Other)
  Sender: FDA-Public Use
  Company Number: B0529993A

PATIENT
  Sex: Female

DRUGS (8)
  1. SERETIDE [Suspect]
     Indication: ASTHMA
     Dosage: 1PUFF TWICE PER DAY
     Route: 055
     Dates: start: 20080101
  2. VENTOLIN [Suspect]
     Indication: ASTHMA
     Route: 055
  3. CITALOPRAM HYDROBROMIDE [Concomitant]
  4. PARACETAMOL [Concomitant]
  5. DIHYDROCODEINE [Concomitant]
  6. TERBINAFINE HCL [Concomitant]
  7. PREGABALIN [Concomitant]
  8. NAPROXEN [Concomitant]

REACTIONS (3)
  - ASTHMA [None]
  - DYSPNOEA [None]
  - WHEEZING [None]
